FAERS Safety Report 24229334 (Version 1)
Quarter: 2024Q3

REPORT INFORMATION
  Report Type: Spontaneous
  Country: US (occurrence: US)
  Receive Date: 20240820
  Receipt Date: 20240820
  Transmission Date: 20241017
  Serious: No
  Sender: SANDOZ
  Company Number: US-SANDOZ-SDZ2024US073829

PATIENT
  Age: 1 Year

DRUGS (1)
  1. OMNITROPE [Suspect]
     Active Substance: SOMATROPIN
     Indication: Product used for unknown indication
     Route: 065
     Dates: start: 20240819

REACTIONS (1)
  - Pharyngitis streptococcal [Unknown]

NARRATIVE: CASE EVENT DATE: 20240819
